FAERS Safety Report 12812834 (Version 2)
Quarter: 2018Q1

REPORT INFORMATION
  Report Type: Spontaneous
  Country: US (occurrence: US)
  Receive Date: 20161005
  Receipt Date: 20180306
  Transmission Date: 20180508
  Serious: Yes (Other)
  Sender: FDA-Public Use
  Company Number: US-ELI_LILLY_AND_COMPANY-US201609011706

PATIENT
  Sex: Male

DRUGS (26)
  1. HUMULIN R [Suspect]
     Active Substance: INSULIN HUMAN
     Dosage: 60 U, PRN AFTERNOON
     Dates: start: 2014
  2. HUMULIN R [Suspect]
     Active Substance: INSULIN HUMAN
     Dosage: 80 U, PRN DINNER
  3. SERTRALINE [Concomitant]
     Active Substance: SERTRALINE HYDROCHLORIDE
     Dosage: 100 MG, DAILY
  4. ASPIRIN                            /00002701/ [Concomitant]
     Active Substance: ASPIRIN
     Dosage: 81 MG, DAILY
  5. HUMULIN R U-500 [Suspect]
     Active Substance: INSULIN HUMAN
     Dosage: 60 U, PRN AFTERNOON,
     Route: 065
     Dates: start: 2014
  6. HUMULIN R [Suspect]
     Active Substance: INSULIN HUMAN
     Dosage: 80 U, PRN DINNER
     Dates: start: 2014
  7. METOLAZONE. [Concomitant]
     Active Substance: METOLAZONE
     Dosage: 2.5 MG, DAILY
  8. POTASSIUM CHLORIDE. [Concomitant]
     Active Substance: POTASSIUM CHLORIDE
     Dosage: 20 MG, BID
  9. HUMULIN R U-500 [Suspect]
     Active Substance: INSULIN HUMAN
     Dosage: 80 U, PRN AT DINNER
     Route: 065
  10. HUMULIN N [Suspect]
     Active Substance: INSULIN HUMAN
     Indication: TYPE 2 DIABETES MELLITUS
     Dosage: UNK UNK, UNKNOWN
     Route: 065
  11. FENOFIBRATE. [Concomitant]
     Active Substance: FENOFIBRATE
     Dosage: 160 MG, DAILY
  12. SLO-NIACIN [Concomitant]
     Active Substance: NIACIN
     Indication: BLOOD CHOLESTEROL
     Dosage: 500 MG, DAILY
  13. HUMULIN R U-500 [Suspect]
     Active Substance: INSULIN HUMAN
     Dosage: 40 U, PRN MORNING
     Route: 065
  14. HUMULIN R U-500 [Suspect]
     Active Substance: INSULIN HUMAN
     Dosage: 60 U, PRN AFTERNOON,
     Route: 065
  15. LEVOTHYROXINE. [Concomitant]
     Active Substance: LEVOTHYROXINE
     Dosage: 200 MG, DAILY
  16. HUMULIN R U-500 [Suspect]
     Active Substance: INSULIN HUMAN
     Dosage: 80 U, PRN AT DINNER
     Route: 065
     Dates: start: 2014
  17. HUMULIN R [Suspect]
     Active Substance: INSULIN HUMAN
     Indication: TYPE 2 DIABETES MELLITUS
     Dosage: 40 U, PRN MORNING
     Dates: start: 2014
  18. METOPROLOL SUCCINATE. [Concomitant]
     Active Substance: METOPROLOL SUCCINATE
     Dosage: 50 MG, BID
  19. GABAPENTIN. [Concomitant]
     Active Substance: GABAPENTIN
     Dosage: 300 MG, 14 DF PER DAY
  20. FISH OIL [Concomitant]
     Active Substance: FISH OIL
     Dosage: 1200 MG, UNKNOWN
  21. HUMULIN R [Suspect]
     Active Substance: INSULIN HUMAN
     Dosage: 40 U, PRN MORNING
  22. FOLIC ACID. [Concomitant]
     Active Substance: FOLIC ACID
     Dosage: 1 MG, DAILY
  23. FUROSEMIDE. [Concomitant]
     Active Substance: FUROSEMIDE
     Dosage: 400 MG, DAILY
  24. HUMULIN R U-500 [Suspect]
     Active Substance: INSULIN HUMAN
     Indication: TYPE 2 DIABETES MELLITUS
     Dosage: 40 U, PRN MORNING
     Route: 065
     Dates: start: 2014
  25. HUMULIN R [Suspect]
     Active Substance: INSULIN HUMAN
     Dosage: 60 U, PRN AFTERNOON
  26. TRULICITY [Suspect]
     Active Substance: DULAGLUTIDE
     Indication: TYPE 2 DIABETES MELLITUS
     Dosage: 1.5 MG, WEEKLY (1/W)
     Route: 058
     Dates: start: 2016, end: 2017

REACTIONS (4)
  - Blood glucose increased [Unknown]
  - Visual acuity reduced [Not Recovered/Not Resolved]
  - Pain [Recovered/Resolved]
  - Wrong technique in product usage process [Unknown]

NARRATIVE: CASE EVENT DATE: 201601
